FAERS Safety Report 7893111-X (Version None)
Quarter: 2011Q4

REPORT INFORMATION
  Report Type: 
  Country: None (occurrence: None)
  Receive Date: 20111104
  Receipt Date: 20111028
  Transmission Date: 20120403
  Serious: Yes (Hospitalization)
  Sender: FDA-Public Use
  Company Number: US-B.I. PHARMACEUTICALS,INC./RIDGEFIELD-2011-BP-25201BP

PATIENT
  Sex: Male

DRUGS (16)
  1. LASIX [Concomitant]
     Indication: CARDIAC FAILURE CONGESTIVE
     Route: 048
  2. ADVAIR DISKUS 100/50 [Concomitant]
     Indication: CHRONIC OBSTRUCTIVE PULMONARY DISEASE
     Route: 055
  3. LASIX [Concomitant]
     Dosage: 40 MG
     Route: 048
  4. POTASSIUM [Concomitant]
     Indication: VITAMIN SUPPLEMENTATION
     Route: 048
  5. GLYBURIDE [Concomitant]
     Indication: DIABETES MELLITUS
     Route: 048
  6. ALDACTONE [Concomitant]
     Indication: HYPERTENSION
     Route: 048
  7. ZOCOR [Concomitant]
     Indication: BLOOD CHOLESTEROL INCREASED
     Route: 048
  8. SPIRIVA [Suspect]
     Indication: CHRONIC OBSTRUCTIVE PULMONARY DISEASE
     Dosage: 18 MCG
     Route: 055
     Dates: start: 20110601
  9. AMOXICILLIN [Concomitant]
     Indication: CELLULITIS
     Route: 048
  10. THEO-DUR [Concomitant]
     Indication: CHRONIC OBSTRUCTIVE PULMONARY DISEASE
     Route: 048
  11. LANOXIN [Concomitant]
     Indication: CARDIAC FAILURE CONGESTIVE
     Route: 048
  12. COREG [Concomitant]
     Indication: HYPERTENSION
     Route: 048
  13. PROTONIX [Concomitant]
     Indication: GASTROOESOPHAGEAL REFLUX DISEASE
     Route: 048
  14. PREDNISONE [Concomitant]
     Indication: CHRONIC OBSTRUCTIVE PULMONARY DISEASE
     Route: 048
  15. HUMALOG 75/25 [Concomitant]
     Indication: DIABETES MELLITUS
     Route: 058
  16. STOOL SOFTENERS [Concomitant]
     Indication: CONSTIPATION
     Route: 048

REACTIONS (2)
  - HYPERGLYCAEMIA [None]
  - CELLULITIS [None]
